FAERS Safety Report 6222898-7 (Version None)
Quarter: 2009Q2

REPORT INFORMATION
  Report Type: 
  Country: None (occurrence: None)
  Receive Date: 20090611
  Receipt Date: 20090609
  Transmission Date: 20091009
  Serious: Yes (Death, Hospitalization)
  Sender: FDA-Public Use
  Company Number: US-BRISTOL-MYERS SQUIBB COMPANY-14644108

PATIENT
  Age: 38 Year
  Sex: Male

DRUGS (4)
  1. ABILIFY [Suspect]
     Indication: DEPRESSION
     Route: 048
     Dates: start: 20050113
  2. ABILIFY [Suspect]
     Indication: SCHIZOPHRENIA
     Route: 048
     Dates: start: 20050113
  3. SEROQUEL [Suspect]
     Indication: SLEEP DISORDER
     Dosage: QHS
     Route: 048
  4. ZOLOFT [Suspect]
     Indication: DEPRESSED MOOD
     Route: 048

REACTIONS (2)
  - DIABETIC KETOACIDOSIS [None]
  - WEIGHT INCREASED [None]
